FAERS Safety Report 22675946 (Version 2)
Quarter: 2023Q4

REPORT INFORMATION
  Report Type: Spontaneous
  Country: US (occurrence: US)
  Receive Date: 20230706
  Receipt Date: 20231211
  Transmission Date: 20240110
  Serious: Yes (Other)
  Sender: FDA-Public Use
  Company Number: US-JNJFOC-20230672136

PATIENT
  Sex: Male

DRUGS (7)
  1. TYLENOL EXTRA STRENGTH [Suspect]
     Active Substance: ACETAMINOPHEN
     Indication: Back pain
     Dosage: 1-2 TIMES PER WEEK
     Route: 064
     Dates: start: 201706, end: 201712
  2. TYLENOL REGULAR STRENGTH [Suspect]
     Active Substance: ACETAMINOPHEN
     Indication: Back pain
     Dosage: 1-2 TIMES PER WEEK
     Route: 064
     Dates: start: 201706, end: 201712
  3. ACETAMINOPHEN [Suspect]
     Active Substance: ACETAMINOPHEN
     Indication: Product used for unknown indication
     Route: 064
     Dates: start: 201704, end: 201712
  4. ACETAMINOPHEN [Suspect]
     Active Substance: ACETAMINOPHEN
     Indication: Back pain
     Dosage: 1-2 TIMES PER WEEK
     Route: 064
     Dates: start: 201706, end: 201712
  5. INSULIN NOS [Concomitant]
     Active Substance: INSULIN NOS
     Indication: Diabetes mellitus
     Route: 065
     Dates: start: 201801
  6. ZANTAC [Concomitant]
     Active Substance: RANITIDINE HYDROCHLORIDE
     Indication: Dyspepsia
     Dosage: 150 MG?AS NEEDED
     Route: 064
     Dates: start: 201701, end: 201709
  7. POLYETHYLENE GLYCOL 3350 [Concomitant]
     Active Substance: POLYETHYLENE GLYCOL 3350
     Indication: Constipation
     Dosage: 3350 NIGHTLY
     Route: 064
     Dates: start: 201701, end: 201709

REACTIONS (3)
  - Autism spectrum disorder [Unknown]
  - Foetal exposure during pregnancy [Unknown]
  - Attention deficit hyperactivity disorder [Unknown]

NARRATIVE: CASE EVENT DATE: 20170101
